FAERS Safety Report 4948845-3 (Version None)
Quarter: 2006Q1

REPORT INFORMATION
  Report Type: 
  Country: None (occurrence: None)
  Receive Date: 20060321
  Receipt Date: 20060310
  Transmission Date: 20060701
  Serious: Yes (Hospitalization)
  Sender: FDA-Public Use
  Company Number: PHHO2006AR04241

PATIENT
  Sex: Female

DRUGS (1)
  1. ZELMAC / HTF 919A [Suspect]
     Dates: start: 20050901

REACTIONS (1)
  - CYTOMEGALOVIRUS HEPATITIS [None]
